FAERS Safety Report 10910662 (Version 1)
Quarter: 2015Q1

REPORT INFORMATION
  Report Type: Spontaneous
  Country: US (occurrence: US)
  Receive Date: 20150312
  Receipt Date: 20150312
  Transmission Date: 20150721
  Serious: No
  Sender: FDA-Public Use
  Company Number: US-SA-2015SA008436

PATIENT
  Age: 80 Year
  Sex: Male

DRUGS (1)
  1. NASACORT ALLERGY 24HR [Suspect]
     Active Substance: TRIAMCINOLONE ACETONIDE
     Indication: RHINORRHOEA
     Dosage: DOSE: 2 SPRAYS EACH NOSTRIL?FREQUENCY - 20-JAN-2015
     Route: 045
     Dates: start: 20150119

REACTIONS (3)
  - Therapeutic response decreased [Unknown]
  - Nasal dryness [Unknown]
  - Dry mouth [Unknown]
